FAERS Safety Report 8076514-2 (Version None)
Quarter: 2012Q1

REPORT INFORMATION
  Report Type: 
  Country: None (occurrence: None)
  Receive Date: 20120127
  Receipt Date: 20120123
  Transmission Date: 20120608
  Serious: Yes (Other)
  Sender: FDA-Public Use
  Company Number: IT-PFIZER INC-2012018872

PATIENT
  Sex: Male

DRUGS (2)
  1. CISPLATIN [Suspect]
  2. CYTARABINE [Suspect]

REACTIONS (3)
  - HAEMATEMESIS [None]
  - HAEMOPTYSIS [None]
  - THROMBOCYTOPENIA [None]
